FAERS Safety Report 8295138-5 (Version None)
Quarter: 2012Q2

REPORT INFORMATION
  Report Type: 
  Country: None (occurrence: None)
  Receive Date: 20120418
  Receipt Date: 20120417
  Transmission Date: 20120825
  Serious: Yes (Other)
  Sender: FDA-Public Use
  Company Number: ES-PFIZER INC-2012080199

PATIENT
  Age: 77 Year
  Sex: Male

DRUGS (7)
  1. ESTRACYT [Suspect]
     Indication: NEOPLASM PROSTATE
     Dosage: 140 MG, 1X/DAY
     Route: 048
     Dates: start: 20120120, end: 20120124
  2. AMLODIPINE [Concomitant]
     Indication: HYPERTENSION
     Dosage: 10 MG, 1X/DAY
     Route: 048
  3. SPIRIVA [Concomitant]
     Indication: ASTHMA
     Dosage: ONCE DAILY
     Route: 055
  4. ENALAPRIL [Concomitant]
     Indication: HYPERTENSION
     Dosage: 20 MG, 1X/DAY
     Route: 048
  5. HYDROCHLOROTHIAZIDE [Concomitant]
     Indication: HYPERTENSION
     Dosage: 12.5 MG, 1X/DAY
     Route: 048
  6. PLUSVENT [Concomitant]
     Indication: ASTHMA
     Dosage: 2 DF, 2X/DAY
     Route: 055
  7. SINGULAIR [Concomitant]
     Indication: ASTHMA
     Dosage: 10 MG, 1X/DAY
     Route: 048

REACTIONS (5)
  - PENILE PAIN [None]
  - TESTICULAR PAIN [None]
  - ABDOMINAL PAIN LOWER [None]
  - PROSTATIC DISORDER [None]
  - MICTURITION FREQUENCY DECREASED [None]
